FAERS Safety Report 6144429-2 (Version None)
Quarter: 2009Q2

REPORT INFORMATION
  Report Type: 
  Country: None (occurrence: None)
  Receive Date: 20090401
  Receipt Date: 20090323
  Transmission Date: 20091009
  Serious: Yes (Other)
  Sender: FDA-Public Use
  Company Number: 1-17912699

PATIENT

DRUGS (2)
  1. WARFARIN SODIUM [Suspect]
  2. SORAFENIB [Suspect]
     Indication: RENAL CELL CARCINOMA
     Dosage: ORAL
     Route: 048

REACTIONS (6)
  - COAGULOPATHY [None]
  - DRUG INTERACTION [None]
  - DRUG TOXICITY [None]
  - DUODENAL ULCER [None]
  - GASTROINTESTINAL HAEMORRHAGE [None]
  - INTERNATIONAL NORMALISED RATIO INCREASED [None]
